FAERS Safety Report 8725441 (Version 3)
Quarter: 2012Q4

REPORT INFORMATION
  Report Type: 
  Country: US (occurrence: US)
  Receive Date: 20120815
  Receipt Date: 20121018
  Transmission Date: 20130627
  Serious: Yes (Other)
  Sender: FDA-Public Use
  Company Number: US-BAXTER-2012BAX013981

PATIENT
  Age: 66 Year
  Sex: Female
  Weight: 65.38 kg

DRUGS (3)
  1. GAMMAGARD LIQUID [Suspect]
     Indication: IDIOPATHIC THROMBOCYTOPENIC PURPURA
     Route: 042
     Dates: start: 20120703, end: 20120703
  2. GAMMAGARD LIQUID [Suspect]
     Route: 042
     Dates: start: 20120705, end: 20120705
  3. GAMMAGARD LIQUID [Suspect]
     Route: 042
     Dates: start: 20120703, end: 20120710

REACTIONS (5)
  - Coombs direct test positive [Not Recovered/Not Resolved]
  - Rhesus antibodies positive [Not Recovered/Not Resolved]
  - Rhesus antibodies positive [Not Recovered/Not Resolved]
  - Haemoglobin decreased [Not Recovered/Not Resolved]
  - Platelet count decreased [Unknown]
